FAERS Safety Report 6022157-1 (Version None)
Quarter: 2008Q4

REPORT INFORMATION
  Report Type: 
  Country: None (occurrence: None)
  Receive Date: 20081229
  Receipt Date: 20081222
  Transmission Date: 20090506
  Serious: Yes (Hospitalization)
  Sender: FDA-Public Use
  Company Number: US-ROXANE LABORATORIES, INC.-2008-RO-00469RO

PATIENT
  Sex: Male

DRUGS (11)
  1. PREDNISONE [Suspect]
     Indication: PROSTATE CANCER METASTATIC
     Dosage: 5MG
     Route: 048
     Dates: start: 20081125, end: 20081130
  2. PLACEBO [Suspect]
     Indication: PROSTATE CANCER METASTATIC
     Route: 048
     Dates: start: 20081124, end: 20081124
  3. PLACEBO [Suspect]
     Route: 048
     Dates: start: 20081125, end: 20081130
  4. DOCETAXEL [Suspect]
     Indication: PROSTATE CANCER METASTATIC
     Route: 042
     Dates: start: 20081125, end: 20081125
  5. ALTACE [Concomitant]
  6. ASPIRIN [Concomitant]
     Dates: end: 20081130
  7. CRESTOR [Concomitant]
  8. FINASTERIDE [Concomitant]
  9. VESICARE [Concomitant]
  10. VITAMIN D [Concomitant]
  11. IRON [Concomitant]

REACTIONS (2)
  - FAECALOMA [None]
  - HYPOKALAEMIA [None]
